FAERS Safety Report 24630176 (Version 1)
Quarter: 2024Q4

REPORT INFORMATION
  Report Type: Spontaneous
  Country: US (occurrence: US)
  Receive Date: 20241118
  Receipt Date: 20241118
  Transmission Date: 20250115
  Serious: Yes (Hospitalization)
  Sender: BRISTOL-MYERS SQUIBB COMPANY
  Company Number: US-BRISTOL-MYERS SQUIBB COMPANY-2024-179658

PATIENT
  Age: 74 Year
  Sex: Female

DRUGS (1)
  1. KRAZATI [Suspect]
     Active Substance: ADAGRASIB
     Indication: Product used for unknown indication
     Dosage: TAKE 3 TABLETS (600MG TOTAL) BY MOUTH IN THE MORNING AND 3 TABLETS (600MG TOTAL) BEFORE BEDTIME. SWA
     Route: 048

REACTIONS (1)
  - Hospitalisation [Unknown]
